FAERS Safety Report 6674203-X (Version None)
Quarter: 2010Q2

REPORT INFORMATION
  Report Type: 
  Country: None (occurrence: None)
  Receive Date: 20100409
  Receipt Date: 20100330
  Transmission Date: 20101027
  Serious: Yes (Other)
  Sender: FDA-Public Use
  Company Number: CA-JNJFOC-20100400737

PATIENT
  Sex: Female
  Weight: 70 kg

DRUGS (9)
  1. REMICADE [Suspect]
     Indication: RHEUMATOID ARTHRITIS
     Route: 042
  2. REMICADE [Suspect]
     Route: 042
  3. BIAXIN [Suspect]
     Indication: COUGH
  4. UROZIDE [Concomitant]
  5. METOPROLOL TARTRATE [Concomitant]
  6. PREDNISONE TAB [Concomitant]
  7. METHOTREXATE [Concomitant]
     Route: 058
  8. VITAMIN D [Concomitant]
  9. FOSAMAX [Concomitant]

REACTIONS (8)
  - COUGH [None]
  - DIARRHOEA [None]
  - DIZZINESS [None]
  - FEELING OF BODY TEMPERATURE CHANGE [None]
  - MYALGIA [None]
  - NAUSEA [None]
  - SHOULDER OPERATION [None]
  - VOMITING [None]
